FAERS Safety Report 15277093 (Version 1)
Quarter: 2018Q3

REPORT INFORMATION
  Report Type: Spontaneous
  Country: BR (occurrence: BR)
  Receive Date: 20180814
  Receipt Date: 20180814
  Transmission Date: 20181010
  Serious: Yes (Death, Life-Threatening, Hospitalization, Other)
  Sender: FDA-Public Use
  Company Number: BR-ROCHE-2168874

PATIENT
  Age: 71 Year
  Sex: Male

DRUGS (2)
  1. TECENTRIQ [Suspect]
     Active Substance: ATEZOLIZUMAB
     Indication: MALIGNANT MELANOMA
     Route: 065
     Dates: start: 20180606
  2. TECENTRIQ [Suspect]
     Active Substance: ATEZOLIZUMAB
     Route: 065
     Dates: start: 20180620

REACTIONS (18)
  - Renal failure [Fatal]
  - Tongue paralysis [Unknown]
  - Fatigue [Unknown]
  - Pneumonia [Fatal]
  - Diarrhoea [Fatal]
  - Muscular weakness [Unknown]
  - Erythema [Unknown]
  - Aphonia [Unknown]
  - Asthenia [Unknown]
  - Loss of consciousness [Unknown]
  - Diarrhoea haemorrhagic [Unknown]
  - Kidney infection [Fatal]
  - Dyspnoea [Unknown]
  - Pruritus [Unknown]
  - Oedema [Unknown]
  - Respiratory failure [Fatal]
  - Somnolence [Unknown]
  - Dysphagia [Unknown]
